FAERS Safety Report 25584593 (Version 1)
Quarter: 2025Q3

REPORT INFORMATION
  Report Type: Spontaneous
  Country: CN (occurrence: CN)
  Receive Date: 20250721
  Receipt Date: 20250721
  Transmission Date: 20251021
  Serious: Yes (Hospitalization)
  Sender: NOVARTIS
  Company Number: CN-002147023-NVSC2025CN114562

PATIENT
  Age: 6 Year
  Sex: Male
  Weight: 16 kg

DRUGS (1)
  1. OXCARBAZEPINE [Suspect]
     Active Substance: OXCARBAZEPINE
     Indication: Epilepsy
     Dosage: 1.5 ML, BID
     Route: 048
     Dates: start: 20250618, end: 20250703

REACTIONS (3)
  - Kawasaki^s disease [Unknown]
  - Rash [Recovering/Resolving]
  - Pruritus [Unknown]

NARRATIVE: CASE EVENT DATE: 20250703
